FAERS Safety Report 19753535 (Version 1)
Quarter: 2021Q3

REPORT INFORMATION
  Report Type: Spontaneous
  Country: US (occurrence: US)
  Receive Date: 20210826
  Receipt Date: 20210826
  Transmission Date: 20211014
  Serious: Yes (Hospitalization)
  Sender: FDA-Public Use
  Company Number: US-MALLINCKRODT PHARMACEUTICALS-T202103704

PATIENT
  Age: 11 Month
  Sex: Male

DRUGS (5)
  1. H.P. ACTHAR [Suspect]
     Active Substance: CORTICOTROPIN
     Dosage: 0.04 MILLILITER, QOD FOR 6 DAYS
     Route: 065
     Dates: start: 2021
  2. H.P. ACTHAR [Suspect]
     Active Substance: CORTICOTROPIN
     Dosage: 0.2 MILLILITER, IN THE MORNING FOR 3 DAYS
     Route: 065
     Dates: start: 2021, end: 2021
  3. H.P. ACTHAR [Suspect]
     Active Substance: CORTICOTROPIN
     Dosage: 0.6 MILLILITER, QD FOR 3 DAYS
     Route: 065
     Dates: start: 2021, end: 2021
  4. H.P. ACTHAR [Suspect]
     Active Substance: CORTICOTROPIN
     Dosage: 0.04 MILLILITER, QD FOR 3 DAYS
     Route: 065
     Dates: start: 2021, end: 2021
  5. H.P. ACTHAR [Suspect]
     Active Substance: CORTICOTROPIN
     Indication: INFANTILE SPASMS
     Dosage: 0.3 MILLILITER, BID, FOR 14 DAYS
     Route: 030
     Dates: start: 202105, end: 2021

REACTIONS (4)
  - Infantile spasms [Unknown]
  - Bradycardia [Unknown]
  - Condition aggravated [Not Recovered/Not Resolved]
  - Expired product administered [Unknown]

NARRATIVE: CASE EVENT DATE: 202107
